FAERS Safety Report 4864451-3 (Version None)
Quarter: 2005Q4

REPORT INFORMATION
  Report Type: 
  Country: None (occurrence: None)
  Receive Date: 20051222
  Receipt Date: 20051209
  Transmission Date: 20060501
  Serious: Yes (Death, Other)
  Sender: FDA-Public Use
  Company Number: DE-JNJFOC-20051202113

PATIENT
  Sex: Female

DRUGS (6)
  1. CAELYX [Suspect]
     Indication: GASTRIC CANCER
     Dosage: 1 HOUR INFUSION ON DAYS 1 AND 29 (X 2 CYCLES)
     Route: 042
  2. MITOMYCIN [Suspect]
     Indication: GASTRIC CANCER
     Dosage: DAYS 8 AND 36 (X 2 CYCLES)
     Route: 040
  3. FLUOROURACIL [Suspect]
     Indication: GASTRIC CANCER
     Dosage: 24-HOUR CONTINUOUS INFUSION
     Route: 042
  4. FOLINIC ACID [Concomitant]
     Indication: GASTRIC CANCER
     Dosage: 24-HOUR CONTINUOUS INFUSION
     Route: 042
  5. DEXAMETHASONE [Concomitant]
  6. CLEMASTINE [Concomitant]
     Route: 042

REACTIONS (2)
  - GASTRIC CANCER [None]
  - HAEMOLYTIC URAEMIC SYNDROME [None]
